FAERS Safety Report 4883490-X (Version None)
Quarter: 2006Q1

REPORT INFORMATION
  Report Type: 
  Country: None (occurrence: None)
  Receive Date: 20060118
  Receipt Date: 20050304
  Transmission Date: 20060701
  Serious: Yes (Hospitalization)
  Sender: FDA-Public Use
  Company Number: US-MERCK-0503USA01058

PATIENT
  Age: 54 Year
  Sex: Male
  Weight: 130 kg

DRUGS (2)
  1. VIOXX [Suspect]
     Indication: OSTEOARTHRITIS
     Route: 048
     Dates: start: 19990101, end: 20021201
  2. VIOXX [Suspect]
     Indication: PAIN
     Route: 048
     Dates: start: 19990101, end: 20021201

REACTIONS (7)
  - BACK PAIN [None]
  - CEREBROVASCULAR ACCIDENT [None]
  - CORONARY ARTERY OCCLUSION [None]
  - DYSPNOEA [None]
  - HEART RATE DECREASED [None]
  - MYOCARDIAL INFARCTION [None]
  - NEPHROLITHIASIS [None]
